FAERS Safety Report 8799383 (Version 1)
Quarter: 2012Q4

REPORT INFORMATION
  Report Type: Spontaneous
  Country: CH (occurrence: None)
  Receive Date: 20120914
  Receipt Date: 20120914
  Transmission Date: 20130627
  Serious: Yes (Hospitalization)
  Sender: FDA-Public Use
  Company Number: 2012090023

PATIENT
  Age: 87 Year
  Sex: Male

DRUGS (7)
  1. TOREM [Suspect]
     Indication: ESSENTIAL HYPERTENSION
     Route: 048
     Dates: start: 2009, end: 20120520
  2. TOREM [Suspect]
     Indication: ESSENTIAL HYPERTENSION
     Route: 048
     Dates: start: 2009, end: 20120520
  3. MARCOUMAR [Suspect]
     Dosage: 1 as required (3 mg, 1 as required), Oral
     Route: 048
     Dates: end: 20120520
  4. JANUVIA [Suspect]
     Indication: NON-INSULIN-DEPENDENT DIABETES MELLITUS
     Route: 048
     Dates: end: 20120520
  5. TRIATEC (RAMIPRIL) [Suspect]
     Indication: ESSENTIAL HYPERTENSION
     Route: 048
     Dates: start: 2009, end: 20120521
  6. ALDACTONE (SPIRONOLACTONE) [Concomitant]
  7. GLUCOPHAGE (METFORMIN HCL) [Concomitant]

REACTIONS (4)
  - Pancreatitis acute [None]
  - International normalised ratio increased [None]
  - Blood lactate dehydrogenase increased [None]
  - Hypoalbuminaemia [None]
